FAERS Safety Report 5074220-X (Version None)
Quarter: 2006Q3

REPORT INFORMATION
  Report Type: 
  Country: None (occurrence: None)
  Receive Date: 20060714
  Receipt Date: 20060525
  Transmission Date: 20061208
  Serious: No
  Sender: FDA-Public Use
  Company Number: 2006SP002215

PATIENT
  Age: 34 Year
  Sex: Male
  Weight: 90.7194 kg

DRUGS (1)
  1. LUNESTA [Suspect]
     Indication: INSOMNIA
     Dosage: 2 MG;BIW;ORAL
     Route: 048
     Dates: start: 20050101

REACTIONS (6)
  - AMNESIA [None]
  - CONTUSION [None]
  - HEADACHE [None]
  - MOVEMENT DISORDER [None]
  - PAIN [None]
  - PARASOMNIA [None]
